FAERS Safety Report 6188922-5 (Version None)
Quarter: 2009Q2

REPORT INFORMATION
  Report Type: 
  Country: None (occurrence: None)
  Receive Date: 20090513
  Receipt Date: 20090512
  Transmission Date: 20091009
  Serious: Yes (Life-Threatening)
  Sender: FDA-Public Use
  Company Number: PHEH2009US04701

PATIENT
  Sex: Female

DRUGS (2)
  1. TRILEPTAL [Suspect]
     Dosage: 150 MG, UNK
  2. SYNTHROID [Concomitant]
     Dosage: 25 MCG, UNK

REACTIONS (1)
  - DISTURBANCE IN ATTENTION [None]
